APPROVED DRUG PRODUCT: METOLAZONE
Active Ingredient: METOLAZONE
Strength: 5MG
Dosage Form/Route: TABLET;ORAL
Application: A215616 | Product #002 | TE Code: AB
Applicant: RENATA PLC
Approved: Oct 24, 2022 | RLD: No | RS: No | Type: RX